FAERS Safety Report 6718008-X (Version None)
Quarter: 2010Q2

REPORT INFORMATION
  Report Type: 
  Country: None (occurrence: None)
  Receive Date: 20100510
  Receipt Date: 20100429
  Transmission Date: 20101027
  Serious: Yes (Hospitalization)
  Sender: FDA-Public Use
  Company Number: DE-JNJFOC-20100405538

PATIENT
  Sex: Male
  Weight: 85 kg

DRUGS (5)
  1. REMICADE [Suspect]
     Indication: COLITIS ULCERATIVE
     Route: 042
  2. REMICADE [Suspect]
     Route: 042
  3. PARACETAMOL [Concomitant]
     Indication: ANALGESIC THERAPY
     Route: 048
  4. PANTOPRAZOLE [Concomitant]
     Route: 048
  5. MYCOZOL [Concomitant]

REACTIONS (10)
  - ARRHYTHMIA [None]
  - BLOOD CREATININE INCREASED [None]
  - COLITIS [None]
  - INTENTIONAL OVERDOSE [None]
  - INTESTINAL OBSTRUCTION [None]
  - MEGACOLON [None]
  - POSTOPERATIVE WOUND INFECTION [None]
  - SCROTAL MASS [None]
  - TUBULOINTERSTITIAL NEPHRITIS [None]
  - URINARY TRACT INFECTION [None]
